FAERS Safety Report 18236626 (Version 1)
Quarter: 2020Q3

REPORT INFORMATION
  Report Type: Spontaneous
  Country: US (occurrence: US)
  Receive Date: 20200907
  Receipt Date: 20200907
  Transmission Date: 20201103
  Serious: No
  Sender: FDA-Public Use
  Company Number: US-TEVA-2020-US-1821986

PATIENT
  Sex: Female

DRUGS (1)
  1. AUSTEDO [Suspect]
     Active Substance: DEUTETRABENAZINE
     Indication: TARDIVE DYSKINESIA
     Dosage: 36 MILLIGRAM DAILY; 1 TABLET (12 MG) WITH A 6 MG TABLET TWICE A DAY
     Route: 048
     Dates: start: 201908

REACTIONS (3)
  - Tremor [Unknown]
  - Drug ineffective [Unknown]
  - Amnesia [Unknown]
